FAERS Safety Report 25631128 (Version 3)
Quarter: 2025Q3

REPORT INFORMATION
  Report Type: Spontaneous
  Country: JP (occurrence: JP)
  Receive Date: 20250801
  Receipt Date: 20250904
  Transmission Date: 20251020
  Serious: Yes (Other)
  Sender: ALEXION PHARMACEUTICALS
  Company Number: JP-AstraZeneca-CH-00918323A

PATIENT

DRUGS (5)
  1. IMFINZI [Suspect]
     Active Substance: DURVALUMAB
     Indication: Hepatic lesion
  2. IMFINZI [Suspect]
     Active Substance: DURVALUMAB
     Indication: Metastases to lymph nodes
  3. IMJUDO [Suspect]
     Active Substance: TREMELIMUMAB\TREMELIMUMAB-ACTL
     Indication: Hepatic lesion
  4. IMJUDO [Suspect]
     Active Substance: TREMELIMUMAB\TREMELIMUMAB-ACTL
     Indication: Metastases to lymph nodes
  5. LENVATINIB [Suspect]
     Active Substance: LENVATINIB
     Indication: Metastases to lymph nodes
     Route: 065

REACTIONS (6)
  - Jaundice cholestatic [Unknown]
  - Malignant neoplasm progression [Unknown]
  - Palmar-plantar erythrodysaesthesia syndrome [Unknown]
  - Hypertension [Unknown]
  - Stomatitis [Unknown]
  - Activities of daily living decreased [Unknown]
